FAERS Safety Report 22058114 (Version 1)
Quarter: 2023Q1

REPORT INFORMATION
  Report Type: Spontaneous
  Country: JP (occurrence: JP)
  Receive Date: 20230303
  Receipt Date: 20230303
  Transmission Date: 20230418
  Serious: Yes (Other)
  Sender: FDA-Public Use
  Company Number: JP-MSD-2302JPN003581J

PATIENT
  Age: 78 Year
  Sex: Male

DRUGS (1)
  1. KEYTRUDA [Suspect]
     Active Substance: PEMBROLIZUMAB
     Indication: Malignant palate neoplasm
     Dosage: UNK
     Route: 065
     Dates: start: 20211221, end: 2022

REACTIONS (4)
  - Submandibular abscess [Unknown]
  - Osteomyelitis [Unknown]
  - Malignant neoplasm progression [Recovering/Resolving]
  - Interstitial lung disease [Unknown]

NARRATIVE: CASE EVENT DATE: 20220111
